FAERS Safety Report 10620119 (Version 1)
Quarter: 2014Q4

REPORT INFORMATION
  Report Type: Spontaneous
  Country: US (occurrence: None)
  Receive Date: 20141201
  Receipt Date: 20141201
  Transmission Date: 20150529
  Serious: Yes (Other)
  Sender: FDA-Public Use
  Company Number: None

PATIENT
  Age: 45 Year
  Sex: Female
  Weight: 74.84 kg

DRUGS (1)
  1. EFFEXOR [Suspect]
     Active Substance: VENLAFAXINE HYDROCHLORIDE
     Indication: PANIC ATTACK
     Dosage: 1 PILL AT BEDTIME TAKEN BY MOUTH
     Route: 048

REACTIONS (12)
  - Thinking abnormal [None]
  - Feeling abnormal [None]
  - Tinnitus [None]
  - Tremor [None]
  - Confusional state [None]
  - Withdrawal syndrome [None]
  - Hallucination [None]
  - Diarrhoea [None]
  - Heart rate increased [None]
  - Abdominal discomfort [None]
  - Hyperhidrosis [None]
  - Nervousness [None]

NARRATIVE: CASE EVENT DATE: 20141118
